FAERS Safety Report 5385734-7 (Version None)
Quarter: 2007Q3

REPORT INFORMATION
  Report Type: 
  Country: None (occurrence: None)
  Receive Date: 20070712
  Receipt Date: 20070702
  Transmission Date: 20080115
  Serious: Yes (Other)
  Sender: FDA-Public Use
  Company Number: US-PFIZER INC-2007054293

PATIENT
  Sex: Male
  Weight: 104.3 kg

DRUGS (5)
  1. DILANTIN [Suspect]
     Indication: CONVULSION
  2. PLAVIX [Concomitant]
  3. TOPAMAX [Concomitant]
  4. ZOCOR [Concomitant]
  5. COREG [Concomitant]

REACTIONS (8)
  - ANTICONVULSANT DRUG LEVEL DECREASED [None]
  - CONFUSIONAL STATE [None]
  - CRYING [None]
  - DEPRESSION [None]
  - DIZZINESS [None]
  - FEELING ABNORMAL [None]
  - HYPOTENSION [None]
  - INCOHERENT [None]
